FAERS Safety Report 25305261 (Version 1)
Quarter: 2025Q2

REPORT INFORMATION
  Report Type: Spontaneous
  Country: US (occurrence: US)
  Receive Date: 20250513
  Receipt Date: 20250513
  Transmission Date: 20250716
  Serious: No
  Sender: RHYTHM PHARMACEUTICALS, INC.
  Company Number: US-Rhythm Pharmaceuticals, Inc.-2025RHM000037

PATIENT

DRUGS (1)
  1. IMCIVREE [Suspect]
     Active Substance: SETMELANOTIDE
     Indication: Product used for unknown indication
     Route: 058

REACTIONS (2)
  - Therapy non-responder [Not Recovered/Not Resolved]
  - Skin hyperpigmentation [Recovered/Resolved]
